FAERS Safety Report 11752159 (Version 1)
Quarter: 2015Q4

REPORT INFORMATION
  Report Type: Other
  Country: US (occurrence: US)
  Receive Date: 20151118
  Receipt Date: 20151118
  Transmission Date: 20160304
  Serious: Yes (Other)
  Sender: FDA-Public Use
  Company Number: US-CVS-1044397

PATIENT
  Age: 56 Year
  Sex: Female
  Weight: 86.36 kg

DRUGS (2)
  1. 81 MG LOW DOSE ASPIRIN [Concomitant]
     Active Substance: ASPIRIN
  2. DIPHENHYDRAMINE HCL [Suspect]
     Active Substance: DIPHENHYDRAMINE HYDROCHLORIDE
     Indication: INSOMNIA
     Route: 048
     Dates: start: 20150504

REACTIONS (4)
  - Fall [None]
  - Loss of consciousness [Recovered/Resolved]
  - Movement disorder [None]
  - Neck injury [None]

NARRATIVE: CASE EVENT DATE: 20150504
